FAERS Safety Report 5450401-8 (Version None)
Quarter: 2007Q3

REPORT INFORMATION
  Report Type: 
  Country: None (occurrence: None)
  Receive Date: 20070803
  Receipt Date: 20070529
  Transmission Date: 20080115
  Serious: Yes (Other)
  Sender: FDA-Public Use
  Company Number: 37549

PATIENT
  Age: 56 Year
  Sex: Male
  Weight: 86.1834 kg

DRUGS (4)
  1. PROPOFOL [Suspect]
     Indication: ANAEMIA
     Dosage: 120MG, IV
     Route: 042
     Dates: start: 20070522
  2. LIPITOR [Concomitant]
  3. RELAFEN [Concomitant]
  4. PAXIL [Concomitant]

REACTIONS (1)
  - INFLUENZA LIKE ILLNESS [None]
